FAERS Safety Report 13567207 (Version 1)
Quarter: 2017Q2

REPORT INFORMATION
  Report Type: Spontaneous
  Country: US (occurrence: US)
  Receive Date: 20170521
  Receipt Date: 20170521
  Transmission Date: 20170830
  Serious: No
  Sender: FDA-Public Use
  Company Number: None

PATIENT
  Age: 65 Year
  Sex: Female
  Weight: 101.7 kg

DRUGS (17)
  1. ATARAX HCL [Concomitant]
  2. KELP [Concomitant]
     Active Substance: KELP
  3. MULTIPLE VITAMINS/MINERALS [Concomitant]
  4. BORAGE SEED OIL CAPSULE [Concomitant]
  5. TENORMIN [Concomitant]
     Active Substance: ATENOLOL
  6. OMEGA-3 ACIDS [Concomitant]
     Active Substance: OMEGA-3 FATTY ACIDS
  7. PREVACID [Concomitant]
     Active Substance: LANSOPRAZOLE
  8. AMBIEN [Concomitant]
     Active Substance: ZOLPIDEM TARTRATE
  9. FLAXSEED [Concomitant]
     Active Substance: FLAX SEED
  10. ALFALFA [Concomitant]
     Active Substance: ALFALFA
  11. AVAPRO [Concomitant]
     Active Substance: IRBESARTAN
  12. PSYLLIUM HUSK FIBER CAPSULES [Concomitant]
  13. PB8 PROBIOTICS [Concomitant]
  14. VITAMIN K-2 [Concomitant]
  15. MSM [Concomitant]
     Active Substance: DIMETHYL SULFONE
  16. NYSTATIN 100,000 UNIT/ML SUSP [Suspect]
     Active Substance: NYSTATIN
     Indication: ORAL CANDIDIASIS
     Dosage: ?          QUANTITY:10 MILLILITERS;?
     Route: 048
     Dates: start: 20170420, end: 20170420
  17. NUCYNTA [Concomitant]
     Active Substance: TAPENTADOL HYDROCHLORIDE

REACTIONS (2)
  - Feeling abnormal [None]
  - Product taste abnormal [None]

NARRATIVE: CASE EVENT DATE: 20170420
